FAERS Safety Report 10154347 (Version 1)
Quarter: 2014Q2

REPORT INFORMATION
  Report Type: Spontaneous
  Country: US (occurrence: None)
  Receive Date: 20140505
  Receipt Date: 20140505
  Transmission Date: 20141212
  Serious: Yes (Life-Threatening, Hospitalization, Disabling)
  Sender: FDA-Public Use
  Company Number: None

PATIENT
  Age: 63 Year
  Sex: Female
  Weight: 51.71 kg

DRUGS (6)
  1. MEBENDAZOLE [Suspect]
     Indication: HOOKWORM INFECTION
     Route: 048
  2. MEBENDAZOLE [Suspect]
     Indication: NEMATODIASIS
     Route: 048
  3. MEBENDAZOLE [Suspect]
     Indication: MUSCLE SPASMS
     Route: 048
  4. MEBENDAZOLE [Suspect]
     Indication: ABDOMINAL PAIN
     Route: 048
  5. MEBENDAZOLE [Suspect]
     Indication: VOMITING
     Route: 048
  6. MEBENDAZOLE [Suspect]
     Route: 048

REACTIONS (14)
  - Drug ineffective [None]
  - Malaise [None]
  - Product taste abnormal [None]
  - Reaction to drug excipients [None]
  - Neuropathy peripheral [None]
  - Nausea [None]
  - Vomiting [None]
  - Infection parasitic [None]
  - Muscle spasms [None]
  - Aphagia [None]
  - Product counterfeit [None]
  - Counterfeit drug administered [None]
  - Product quality issue [None]
  - Product substitution issue [None]
